FAERS Safety Report 9304979 (Version 2)
Quarter: 2013Q2

REPORT INFORMATION
  Report Type: Spontaneous
  Country: JP (occurrence: JP)
  Receive Date: 20130523
  Receipt Date: 20130607
  Transmission Date: 20140414
  Serious: Yes (Death)
  Sender: FDA-Public Use
  Company Number: JP-GENZYME-FABR-1003270

PATIENT
  Sex: Female

DRUGS (1)
  1. FABRAZYME [Suspect]
     Indication: FABRY^S DISEASE
     Dosage: 35 MG, Q4W
     Route: 042
     Dates: start: 20090608, end: 20130418

REACTIONS (1)
  - Sudden cardiac death [Fatal]
